FAERS Safety Report 10184064 (Version 1)
Quarter: 2014Q2

REPORT INFORMATION
  Report Type: Spontaneous
  Country: MO (occurrence: MO)
  Receive Date: 20140520
  Receipt Date: 20140520
  Transmission Date: 20141212
  Serious: Yes (Death, Disabling)
  Sender: FDA-Public Use
  Company Number: MO-GLAXOSMITHKLINE-B0995267A

PATIENT
  Age: 66 Year
  Sex: Male

DRUGS (1)
  1. VOTRIENT [Suspect]
     Indication: SARCOMA
     Dosage: 800MG PER DAY
     Dates: start: 20130227, end: 20130605

REACTIONS (5)
  - Blindness [Unknown]
  - Anaemia [Unknown]
  - Diarrhoea [Unknown]
  - Disease progression [Fatal]
  - Haemorrhoidal haemorrhage [Unknown]
